FAERS Safety Report 7647729-X (Version None)
Quarter: 2011Q3

REPORT INFORMATION
  Report Type: 
  Country: None (occurrence: None)
  Receive Date: 20110801
  Receipt Date: 20110801
  Transmission Date: 20111222
  Serious: No
  Sender: FDA-Public Use
  Company Number: None

PATIENT
  Age: 50 Year
  Sex: Female
  Weight: 47.627 kg

DRUGS (1)
  1. LATISSE [Suspect]
     Dosage: 1 DROP
     Route: 047
     Dates: start: 20091117, end: 20100330

REACTIONS (4)
  - HYPOTRICHOSIS [None]
  - ILL-DEFINED DISORDER [None]
  - MADAROSIS [None]
  - SKIN DISCOLOURATION [None]
